FAERS Safety Report 6369194-5 (Version None)
Quarter: 2009Q3

REPORT INFORMATION
  Report Type: 
  Country: None (occurrence: None)
  Receive Date: 20090910
  Receipt Date: 20080226
  Transmission Date: 20100115
  Serious: Yes (Other)
  Sender: FDA-Public Use
  Company Number: OMX-2009-00036

PATIENT

DRUGS (1)
  1. QUIXIL [Suspect]

REACTIONS (2)
  - AIR EMBOLISM [None]
  - INTENTIONAL DRUG MISUSE [None]
